FAERS Safety Report 10508522 (Version 4)
Quarter: 2014Q4

REPORT INFORMATION
  Report Type: Spontaneous
  Country: CA (occurrence: CA)
  Receive Date: 20141009
  Receipt Date: 20141104
  Transmission Date: 20150528
  Serious: Yes (Hospitalization, Other)
  Sender: FDA-Public Use
  Company Number: CA-GSKJP-DK201110796002

PATIENT
  Age: 67 Year
  Sex: Female
  Weight: 73.5 kg

DRUGS (8)
  1. OXYGEN. [Concomitant]
     Active Substance: OXYGEN
  2. BUPROPION HYDROCHLORIDE. [Concomitant]
     Active Substance: BUPROPION HYDROCHLORIDE
  3. ADVAIR DISKUS [Suspect]
     Active Substance: FLUTICASONE PROPIONATE\SALMETEROL XINAFOATE
     Indication: CHRONIC OBSTRUCTIVE PULMONARY DISEASE
     Dosage: 1 PUFF, BID
     Route: 055
  4. DICLOFENAC [Concomitant]
     Active Substance: DICLOFENAC
  5. VENTOLIN HFA [Suspect]
     Active Substance: ALBUTEROL SULFATE
     Indication: CHRONIC OBSTRUCTIVE PULMONARY DISEASE
     Dosage: UNK UNK, U
     Route: 065
     Dates: start: 201301
  6. SPIRIVA [Concomitant]
     Active Substance: TIOTROPIUM BROMIDE MONOHYDRATE
     Indication: CHRONIC OBSTRUCTIVE PULMONARY DISEASE
  7. AIROMIR [Concomitant]
     Active Substance: ALBUTEROL SULFATE
  8. VENTOLIN [Suspect]
     Active Substance: ALBUTEROL SULFATE
     Indication: PRODUCT USED FOR UNKNOWN INDICATION
     Dosage: UNK, U
     Route: 065

REACTIONS (17)
  - Laceration [Recovered/Resolved]
  - Inappropriate schedule of drug administration [Unknown]
  - Breath sounds abnormal [Not Recovered/Not Resolved]
  - Product quality issue [Unknown]
  - Productive cough [Unknown]
  - Abdominal distension [Unknown]
  - Dyspnoea [Unknown]
  - Thyroid hormones increased [Unknown]
  - Dyspnoea [Not Recovered/Not Resolved]
  - Chronic obstructive pulmonary disease [Unknown]
  - Drug ineffective [Unknown]
  - Weight increased [Unknown]
  - Drug administration error [Unknown]
  - Overdose [Unknown]
  - Weight loss poor [Unknown]
  - Pneumonia [Unknown]
  - Medication error [Unknown]

NARRATIVE: CASE EVENT DATE: 20110805
